FAERS Safety Report 5241158-4 (Version None)
Quarter: 2007Q1

REPORT INFORMATION
  Report Type: 
  Country: None (occurrence: None)
  Receive Date: 20070215
  Receipt Date: 20070215
  Transmission Date: 20070707
  Serious: No
  Sender: FDA-Public Use
  Company Number: None

PATIENT
  Sex: Female
  Weight: 102.0593 kg

DRUGS (1)
  1. ZICCAM NASAL SPRAY ZICAM [Suspect]
     Indication: NASOPHARYNGITIS
     Dosage: SPRAY IN NOSTRILS; ONLY SPRAYED ONCE IN EACH
     Dates: start: 20061118, end: 20061118

REACTIONS (6)
  - AGEUSIA [None]
  - ANOSMIA [None]
  - HYPOGEUSIA [None]
  - NASAL DISCOMFORT [None]
  - NASAL DRYNESS [None]
  - RHINALGIA [None]
